FAERS Safety Report 5821520-9 (Version None)
Quarter: 2008Q3

REPORT INFORMATION
  Report Type: 
  Country: None (occurrence: None)
  Receive Date: 20080724
  Receipt Date: 20080213
  Transmission Date: 20090109
  Serious: No
  Sender: FDA-Public Use
  Company Number: US-BAYER-200810738BCC

PATIENT
  Age: 87 Year
  Sex: Female
  Weight: 64 kg

DRUGS (2)
  1. ALEVE [Suspect]
     Indication: BACK PAIN
     Route: 048
  2. CADUET [Concomitant]
     Indication: HYPERTENSION
     Route: 047

REACTIONS (1)
  - CONTUSION [None]
